FAERS Safety Report 17004995 (Version 1)
Quarter: 2019Q4

REPORT INFORMATION
  Report Type: Spontaneous
  Country: US (occurrence: US)
  Receive Date: 20190926
  Receipt Date: 20190926
  Transmission Date: 20200122
  Serious: Yes (Hospitalization)
  Sender: FDA-Public Use
  Company Number: None

PATIENT
  Sex: Male

DRUGS (1)
  1. INLYTA [Suspect]
     Active Substance: AXITINIB
     Indication: RENAL CANCER
     Route: 048
     Dates: start: 20170421

REACTIONS (6)
  - Arthritis [None]
  - Gait disturbance [None]
  - Asthenia [None]
  - Diarrhoea [None]
  - Dehydration [None]
  - Renal failure [None]
